FAERS Safety Report 20138879 (Version 2)
Quarter: 2021Q4

REPORT INFORMATION
  Report Type: Report from Study
  Country: IT (occurrence: IT)
  Receive Date: 20211202
  Receipt Date: 20211220
  Transmission Date: 20220303
  Serious: Yes (Other)
  Sender: FDA-Public Use
  Company Number: IT-NOVARTISPH-NVSC2020IT031118

PATIENT
  Age: 73 Year
  Sex: Female

DRUGS (17)
  1. TRAMETINIB [Suspect]
     Active Substance: TRAMETINIB
     Indication: Malignant melanoma
     Dosage: 2 OT
     Route: 065
     Dates: start: 20190329, end: 20190418
  2. TRAMETINIB [Suspect]
     Active Substance: TRAMETINIB
     Dosage: 2 OT
     Route: 065
     Dates: start: 20190419, end: 20190420
  3. TRAMETINIB [Suspect]
     Active Substance: TRAMETINIB
     Dosage: 2 OT
     Route: 065
     Dates: start: 20190421, end: 20190915
  4. TRAMETINIB [Suspect]
     Active Substance: TRAMETINIB
     Dosage: 2 OT
     Route: 065
     Dates: start: 20190924, end: 20191006
  5. TRAMETINIB [Suspect]
     Active Substance: TRAMETINIB
     Dosage: 2 OT
     Route: 065
     Dates: start: 20191022
  6. TRAMETINIB [Suspect]
     Active Substance: TRAMETINIB
     Dosage: UNK
     Route: 065
     Dates: start: 20200310
  7. TRAMETINIB [Suspect]
     Active Substance: TRAMETINIB
     Dosage: 2 UNK
     Route: 048
     Dates: start: 20200319, end: 20200505
  8. TRAMETINIB [Suspect]
     Active Substance: TRAMETINIB
     Dosage: 2 OT
     Route: 065
     Dates: start: 20200623, end: 202007
  9. TRAMETINIB [Suspect]
     Active Substance: TRAMETINIB
     Dosage: 2 UNK
     Route: 065
     Dates: start: 20210601, end: 20210702
  10. TAFINLAR [Suspect]
     Active Substance: DABRAFENIB MESYLATE
     Indication: Malignant melanoma
     Dosage: 300 OT
     Route: 065
     Dates: start: 20190329, end: 20190418
  11. TAFINLAR [Suspect]
     Active Substance: DABRAFENIB MESYLATE
     Dosage: 300 OT
     Route: 065
     Dates: start: 20190421, end: 20190915
  12. TAFINLAR [Suspect]
     Active Substance: DABRAFENIB MESYLATE
     Dosage: 300 OT
     Route: 065
     Dates: start: 20190924, end: 20191006
  13. TAFINLAR [Suspect]
     Active Substance: DABRAFENIB MESYLATE
     Dosage: 300 OT
     Route: 065
     Dates: start: 20191022
  14. TAFINLAR [Suspect]
     Active Substance: DABRAFENIB MESYLATE
     Dosage: UNK
     Route: 065
     Dates: start: 20200310, end: 20200318
  15. TAFINLAR [Suspect]
     Active Substance: DABRAFENIB MESYLATE
     Dosage: 200 UNK
     Route: 065
     Dates: start: 20200526, end: 20200621
  16. RAMIPRIL [Concomitant]
     Active Substance: RAMIPRIL
     Indication: Prophylaxis
     Dosage: 2.5 OT
     Route: 048
     Dates: start: 20190730, end: 20200209
  17. OMEPRAZOLE [Concomitant]
     Active Substance: OMEPRAZOLE
     Indication: Abdominal pain
     Dosage: 40 UNK
     Route: 048
     Dates: start: 20210425

REACTIONS (3)
  - Neutropenia [Recovered/Resolved]
  - Nausea [Recovered/Resolved]
  - Transaminases increased [Recovered/Resolved]

NARRATIVE: CASE EVENT DATE: 20190916
